FAERS Safety Report 20584708 (Version 1)
Quarter: 2022Q1

REPORT INFORMATION
  Report Type: Spontaneous
  Country: US (occurrence: US)
  Receive Date: 20220311
  Receipt Date: 20220311
  Transmission Date: 20220423
  Serious: No
  Sender: FDA-Public Use
  Company Number: US-PFIZER INC-202200255608

PATIENT
  Age: 76 Year

DRUGS (15)
  1. AZITHROMYCIN [Suspect]
     Active Substance: AZITHROMYCIN
     Dosage: UNK
  2. GABAPENTIN [Suspect]
     Active Substance: GABAPENTIN
     Dosage: UNK
  3. ATORVASTATIN CALCIUM [Suspect]
     Active Substance: ATORVASTATIN CALCIUM
     Dosage: UNK
  4. GLIPIZIDE [Suspect]
     Active Substance: GLIPIZIDE
     Dosage: UNK
  5. PREGABALIN [Suspect]
     Active Substance: PREGABALIN
     Dosage: UNK
  6. IRBESARTAN [Suspect]
     Active Substance: IRBESARTAN
     Dosage: UNK
  7. CHOLINE FENOFIBRATE [Suspect]
     Active Substance: CHOLINE FENOFIBRATE
     Dosage: UNK
  8. DEMECLOCYCLINE [Suspect]
     Active Substance: DEMECLOCYCLINE
     Dosage: UNK
  9. EZETIMIBE [Suspect]
     Active Substance: EZETIMIBE
     Dosage: UNK
  10. FLUTICASONE [Suspect]
     Active Substance: FLUTICASONE
     Dosage: UNK
  11. FLUVASTATIN [Suspect]
     Active Substance: FLUVASTATIN SODIUM
     Dosage: UNK
  12. PRAVASTATIN [Suspect]
     Active Substance: PRAVASTATIN
     Dosage: UNK
  13. PREDNISONE [Suspect]
     Active Substance: PREDNISONE
     Dosage: UNK
  14. SIMVASTATIN [Suspect]
     Active Substance: SIMVASTATIN
     Dosage: UNK
  15. TRAMADOL [Suspect]
     Active Substance: TRAMADOL
     Dosage: UNK

REACTIONS (1)
  - Drug hypersensitivity [Unknown]
